FAERS Safety Report 7794840-9 (Version None)
Quarter: 2011Q4

REPORT INFORMATION
  Report Type: 
  Country: None (occurrence: None)
  Receive Date: 20111004
  Receipt Date: 20110921
  Transmission Date: 20120403
  Serious: Yes (Other)
  Sender: FDA-Public Use
  Company Number: PHHY2011JP76599

PATIENT
  Sex: Female
  Weight: 67 kg

DRUGS (2)
  1. LIVALO [Suspect]
     Indication: HYPERCHOLESTEROLAEMIA
     Dosage: 1 DF, DAILY
     Route: 048
     Dates: start: 20110823
  2. DIOVAN [Suspect]
     Indication: HYPERTENSION
     Dosage: 80 MG, DAILY
     Route: 048
     Dates: start: 20110823

REACTIONS (6)
  - ALTERED STATE OF CONSCIOUSNESS [None]
  - DIZZINESS [None]
  - VOMITING [None]
  - GAIT DISTURBANCE [None]
  - STRESS [None]
  - ASTHENIA [None]
